FAERS Safety Report 7773829-X (Version None)
Quarter: 2011Q3

REPORT INFORMATION
  Report Type: 
  Country: None (occurrence: None)
  Receive Date: 20110920
  Receipt Date: 20110908
  Transmission Date: 20111222
  Serious: Yes (Hospitalization, Disabling)
  Sender: FDA-Public Use
  Company Number: 2011VX002663

PATIENT
  Age: 29 Year
  Sex: Male

DRUGS (2)
  1. DIAZEPAM [Suspect]
     Indication: INSOMNIA
     Dosage: 75 MG
  2. VALPROIC ACID [Suspect]

REACTIONS (9)
  - PUPILLARY REFLEX IMPAIRED [None]
  - BRAIN OEDEMA [None]
  - CEREBRAL INFARCTION [None]
  - ENCEPHALOPATHY [None]
  - VISUAL ACUITY REDUCED [None]
  - BRAIN HERNIATION [None]
  - MYDRIASIS [None]
  - HEMIPARESIS [None]
  - OVERDOSE [None]
